FAERS Safety Report 6708087-8 (Version None)
Quarter: 2010Q2

REPORT INFORMATION
  Report Type: 
  Country: None (occurrence: None)
  Receive Date: 20100503
  Receipt Date: 20090915
  Transmission Date: 20101027
  Serious: No
  Sender: FDA-Public Use
  Company Number: US-ASTRAZENECA-2009SE13225

PATIENT
  Sex: Male
  Weight: 83.9 kg

DRUGS (1)
  1. NEXIUM [Suspect]
     Indication: OESOPHAGEAL ULCER
     Route: 048
     Dates: start: 20010101

REACTIONS (1)
  - ERECTILE DYSFUNCTION [None]
